FAERS Safety Report 7556495-8 (Version None)
Quarter: 2011Q2

REPORT INFORMATION
  Report Type: 
  Country: None (occurrence: None)
  Receive Date: 20110620
  Receipt Date: 20110608
  Transmission Date: 20111010
  Serious: Yes (Hospitalization)
  Sender: FDA-Public Use
  Company Number: ES-JNJFOC-20110606189

PATIENT
  Age: 25 Year
  Sex: Male

DRUGS (6)
  1. CLOZAPINE [Suspect]
     Indication: SCHIZOPHRENIA, PARANOID TYPE
     Route: 065
  2. ESCITALOPRAM [Concomitant]
     Indication: ILL-DEFINED DISORDER
  3. BIPERIDEN RETARD [Concomitant]
     Indication: ILL-DEFINED DISORDER
  4. OMEPRAZOLE [Concomitant]
     Indication: ILL-DEFINED DISORDER
  5. RISPERDAL CONSTA [Suspect]
     Indication: SCHIZOPHRENIA, PARANOID TYPE
     Route: 030
  6. TOPIRAMATE [Concomitant]
     Indication: ILL-DEFINED DISORDER

REACTIONS (3)
  - HEPATITIS TOXIC [None]
  - HEPATIC ENCEPHALOPATHY [None]
  - DRUG INEFFECTIVE [None]
